FAERS Safety Report 4723528-3 (Version None)
Quarter: 2005Q3

REPORT INFORMATION
  Report Type: 
  Country: None (occurrence: None)
  Receive Date: 20050722
  Receipt Date: 20050722
  Transmission Date: 20060218
  Serious: Yes (Disabling)
  Sender: FDA-Public Use
  Company Number: None

PATIENT
  Age: 58 Year
  Sex: Female
  Weight: 49.8957 kg

DRUGS (4)
  1. LEVAQUIN [Suspect]
     Indication: EAR INFECTION
     Dosage: 500 MG ONCE DAILY
     Dates: start: 20050610, end: 20050618
  2. LEVAQUIN [Suspect]
     Indication: SINUSITIS
     Dosage: 500 MG ONCE DAILY
     Dates: start: 20050610, end: 20050618
  3. KLONOPIN [Concomitant]
  4. PROPRANOLOL [Concomitant]

REACTIONS (2)
  - ARTHRALGIA [None]
  - TENDONITIS [None]
